FAERS Safety Report 12453833 (Version 7)
Quarter: 2016Q3

REPORT INFORMATION
  Report Type: Report from Study
  Country: PL (occurrence: PL)
  Receive Date: 20160609
  Receipt Date: 20160810
  Transmission Date: 20161109
  Serious: Yes (Other)
  Sender: FDA-Public Use
  Company Number: PL-AMGEN-POLCT2016072187

PATIENT
  Age: 59 Year
  Sex: Male
  Weight: 75 kg

DRUGS (7)
  1. AMG 145 [Suspect]
     Active Substance: EVOLOCUMAB
     Indication: DYSLIPIDAEMIA
     Dosage: 420 MG, UNK
     Route: 058
     Dates: start: 20140604
  2. ACARD [Concomitant]
     Active Substance: ASPIRIN
     Dosage: 75 MG, QD
  3. AXTIL [Concomitant]
     Dosage: 1.25 UNK, QD
  4. PREFILLED AUTOINJECTOR/PEN [Suspect]
     Active Substance: DEVICE
     Indication: DYSLIPIDAEMIA
     Dosage: UNK
     Route: 058
     Dates: start: 20140604
  5. ATORVASTATIN [Suspect]
     Active Substance: ATORVASTATIN
     Indication: DYSLIPIDAEMIA
     Dosage: 40 MG, UNK
     Route: 065
     Dates: start: 20140604
  6. NEBICARD [Concomitant]
     Active Substance: NEBIVOLOL HYDROCHLORIDE
     Dosage: 5 MG, QD
  7. AREPLEX [Concomitant]
     Active Substance: CLOPIDOGREL BISULFATE
     Dosage: 5 MG, QD

REACTIONS (1)
  - Blood creatine phosphokinase increased [Not Recovered/Not Resolved]

NARRATIVE: CASE EVENT DATE: 20160331
